FAERS Safety Report 8772489 (Version 1)
Quarter: 2012Q4

REPORT INFORMATION
  Report Type: 
  Country: US (occurrence: US)
  Receive Date: 20120905
  Receipt Date: 20120905
  Transmission Date: 20130627
  Serious: Yes (Hospitalization, Other)
  Sender: FDA-Public Use
  Company Number: US-009507513-1106USA02214

PATIENT

DRUGS (10)
  1. FOSAMAX [Suspect]
     Indication: OSTEOPOROSIS
     Dosage: 70 mg, QW
     Route: 048
     Dates: start: 20010129, end: 20091011
  2. FOSAMAX [Suspect]
     Indication: OSTEOPENIA
  3. CALCIUM (UNSPECIFIED) [Concomitant]
     Dosage: 600 mg, UNK
  4. RALOXIFENE HYDROCHLORIDE [Concomitant]
     Indication: OSTEOPOROSIS
     Route: 048
     Dates: start: 2001
  5. MK-9359 [Concomitant]
     Route: 048
     Dates: start: 2001
  6. PRINIVIL [Concomitant]
     Route: 048
     Dates: start: 2001
  7. FOSAMAX [Suspect]
     Indication: OSTEOPOROSIS
     Dosage: 70 mg, UNK
     Dates: start: 20080728
  8. FOSAMAX [Suspect]
     Indication: OSTEOPENIA
  9. FOSAMAX [Suspect]
     Indication: OSTEOPOROSIS
     Dosage: 70 mg, UNK
     Route: 048
     Dates: start: 20080507
  10. FOSAMAX [Suspect]
     Indication: OSTEOPENIA

REACTIONS (17)
  - Fall [Unknown]
  - Surgery [Unknown]
  - Femur fracture [Recovering/Resolving]
  - Oral disorder [Unknown]
  - Tooth loss [Unknown]
  - Tooth disorder [Unknown]
  - Vitamin D deficiency [Unknown]
  - Migraine [Unknown]
  - Haemorrhoids [Unknown]
  - Diverticulum [Unknown]
  - Cough [Recovered/Resolved]
  - Hypercholesterolaemia [Unknown]
  - Weight increased [Unknown]
  - Nephrolithiasis [Unknown]
  - Calcium deficiency [Unknown]
  - Hyperparathyroidism secondary [Unknown]
  - Abdominal discomfort [Unknown]
